FAERS Safety Report 19836610 (Version 1)
Quarter: 2021Q3

REPORT INFORMATION
  Report Type: Spontaneous
  Country: US (occurrence: US)
  Receive Date: 20210915
  Receipt Date: 20210915
  Transmission Date: 20211014
  Serious: No
  Sender: FDA-Public Use
  Company Number: US-BIOHAVEN PHARMACEUTICALS-2021BHV00806

PATIENT

DRUGS (2)
  1. NURTEC ODT [Suspect]
     Active Substance: RIMEGEPANT SULFATE
     Indication: MIGRAINE PROPHYLAXIS
  2. NURTEC ODT [Suspect]
     Active Substance: RIMEGEPANT SULFATE
     Indication: MIGRAINE

REACTIONS (6)
  - Vomiting [Unknown]
  - Dyspepsia [Unknown]
  - Diarrhoea [Unknown]
  - Abdominal pain upper [Unknown]
  - Nausea [Unknown]
  - Performance status decreased [Unknown]
